FAERS Safety Report 9355694 (Version 4)
Quarter: 2013Q3

REPORT INFORMATION
  Report Type: Spontaneous
  Country: FR (occurrence: FR)
  Receive Date: 20130619
  Receipt Date: 20130710
  Transmission Date: 20140515
  Serious: Yes (Hospitalization)
  Sender: FDA-Public Use
  Company Number: FR-SANOFI-AVENTIS-2013SA060790

PATIENT
  Age: 65 Year
  Sex: Female

DRUGS (7)
  1. LASILIX SPECIAL [Suspect]
     Indication: CARDIAC FAILURE
     Route: 048
     Dates: start: 20130516, end: 20130526
  2. LASILIX SPECIAL [Suspect]
     Indication: CARDIAC FAILURE
     Route: 048
     Dates: start: 20130527, end: 20130611
  3. FUROSEMIDE [Concomitant]
     Indication: CARDIAC FAILURE
     Route: 048
  4. CORDARONE [Concomitant]
     Route: 048
  5. PREVISCAN [Concomitant]
     Route: 048
  6. ALDACTONE [Concomitant]
     Route: 048
  7. LEVOTHYROX [Concomitant]
     Route: 048

REACTIONS (6)
  - Cardiac failure [Recovered/Resolved]
  - Weight increased [Recovered/Resolved]
  - Dyspnoea [Recovered/Resolved]
  - Oedema [Recovered/Resolved]
  - Drug ineffective [Unknown]
  - Anuria [Not Recovered/Not Resolved]
